FAERS Safety Report 4954122-7 (Version None)
Quarter: 2006Q1

REPORT INFORMATION
  Report Type: 
  Country: None (occurrence: None)
  Receive Date: 20060327
  Receipt Date: 20060316
  Transmission Date: 20060701
  Serious: Yes (Other)
  Sender: FDA-Public Use
  Company Number: JP-GLAXOSMITHKLINE-B0417080A

PATIENT

DRUGS (4)
  1. MERCAPTOPURINE [Suspect]
     Indication: ACUTE MYELOMONOCYTIC LEUKAEMIA
     Route: 048
  2. STEM CELL TRANSPLANT [Concomitant]
     Indication: ACUTE MYELOMONOCYTIC LEUKAEMIA
  3. CYTARABINE [Concomitant]
     Indication: ACUTE MYELOMONOCYTIC LEUKAEMIA
  4. CHEMOTHERAPY [Concomitant]
     Indication: ACUTE MYELOMONOCYTIC LEUKAEMIA

REACTIONS (1)
  - CHROMOSOME ABNORMALITY [None]
